FAERS Safety Report 7454655-8 (Version None)
Quarter: 2011Q2

REPORT INFORMATION
  Report Type: 
  Country: None (occurrence: None)
  Receive Date: 20110503
  Receipt Date: 20100430
  Transmission Date: 20111010
  Serious: Yes (Other)
  Sender: FDA-Public Use
  Company Number: US-PFIZER INC-2010030705

PATIENT
  Age: 46 Year
  Sex: Female
  Weight: 89 kg

DRUGS (2)
  1. DEPO-PROVERA [Suspect]
     Indication: CONTRACEPTION
     Dosage: 150 MG, EVERY 12 WEEKS
     Route: 030
     Dates: start: 20010101
  2. HYDROCHLOROTHIAZIDE [Concomitant]
     Indication: HYPERTENSION
     Dates: end: 20100225

REACTIONS (2)
  - DRUG INEFFECTIVE [None]
  - UNINTENDED PREGNANCY [None]
